FAERS Safety Report 19167608 (Version 3)
Quarter: 2021Q3

REPORT INFORMATION
  Report Type: Spontaneous
  Country: US (occurrence: US)
  Receive Date: 20210422
  Receipt Date: 20210714
  Transmission Date: 20211014
  Serious: Yes (Hospitalization, Other)
  Sender: FDA-Public Use
  Company Number: US-BIOVITRUM-2021US3746

PATIENT
  Age: 38 Year
  Sex: Male

DRUGS (2)
  1. KINERET [Suspect]
     Active Substance: ANAKINRA
     Indication: GOUT
     Route: 058
     Dates: start: 20200331
  2. KRYSTEXXA [Suspect]
     Active Substance: PEGLOTICASE

REACTIONS (5)
  - Hypersensitivity [Unknown]
  - Gout [Unknown]
  - Off label use [Not Recovered/Not Resolved]
  - Wound infection [Unknown]
  - Pain [Unknown]

NARRATIVE: CASE EVENT DATE: 20200330
